FAERS Safety Report 13791353 (Version 1)
Quarter: 2017Q3

REPORT INFORMATION
  Report Type: Spontaneous
  Country: US (occurrence: US)
  Receive Date: 20170725
  Receipt Date: 20170725
  Transmission Date: 20171127
  Serious: Yes (Hospitalization, Other)
  Sender: FDA-Public Use
  Company Number: PHEH2017US022035

PATIENT
  Sex: Male
  Weight: 65.77 kg

DRUGS (3)
  1. NEORAL [Suspect]
     Active Substance: CYCLOSPORINE
     Dosage: 100 MG, BID (2 CAPSULES DURING DAY AND 1 AT NIGHT)
     Route: 065
  2. NEORAL [Suspect]
     Active Substance: CYCLOSPORINE
     Indication: HEART TRANSPLANT
     Dosage: 600 MG, BID
     Route: 065
  3. RAPAMUNE [Suspect]
     Active Substance: SIROLIMUS
     Indication: PRODUCT USED FOR UNKNOWN INDICATION
     Dosage: 2 MG, QD
     Route: 065

REACTIONS (6)
  - Salivary gland disorder [Unknown]
  - Dyspnoea [Recovered/Resolved]
  - Throat cancer [Unknown]
  - Viral infection [Unknown]
  - Lymphoma [Recovered/Resolved]
  - Malaise [Unknown]
